FAERS Safety Report 16044183 (Version 1)
Quarter: 2019Q1

REPORT INFORMATION
  Report Type: Spontaneous
  Country: CN (occurrence: CN)
  Receive Date: 20190306
  Receipt Date: 20190306
  Transmission Date: 20190418
  Serious: Yes (Hospitalization, Other)
  Sender: FDA-Public Use
  Company Number: CN-TAKEDA-2019TJP004807

PATIENT
  Age: 72 Year
  Sex: Female
  Weight: 43 kg

DRUGS (1)
  1. TAKEPRON [Suspect]
     Active Substance: LANSOPRAZOLE
     Indication: GASTRITIS EROSIVE
     Dosage: 30 MILLIGRAM, BID
     Route: 048
     Dates: start: 20181231, end: 20181231

REACTIONS (1)
  - Anaphylactic shock [Recovering/Resolving]

NARRATIVE: CASE EVENT DATE: 20181231
